FAERS Safety Report 8392630-X (Version None)
Quarter: 2012Q2

REPORT INFORMATION
  Report Type: 
  Country: None (occurrence: None)
  Receive Date: 20120525
  Receipt Date: 20120525
  Transmission Date: 20120825
  Serious: Yes (Hospitalization)
  Sender: FDA-Public Use
  Company Number: None

PATIENT
  Age: 65 Year
  Sex: Female
  Weight: 67.1324 kg

DRUGS (2)
  1. TELAPREVIR 375 MG TABLETS VERTEX [Suspect]
     Indication: HEPATITIS C
     Dosage: 2 TAB TID PO
     Route: 048
     Dates: start: 20111130, end: 20120221
  2. PEGASYS/RIBAVIRIN 180 MCG/200 MG [Suspect]
     Indication: HEPATITIS C
     Dosage: 180 MCG/1000 MG WEEKLY/DAILY OTHER
     Route: 050
     Dates: start: 20111130

REACTIONS (5)
  - HAEMATEMESIS [None]
  - ABDOMINAL PAIN [None]
  - NAUSEA [None]
  - VARICES OESOPHAGEAL [None]
  - VOMITING [None]
